FAERS Safety Report 7702104-4 (Version None)
Quarter: 2011Q3

REPORT INFORMATION
  Report Type: 
  Country: None (occurrence: None)
  Receive Date: 20110822
  Receipt Date: 20110809
  Transmission Date: 20111222
  Serious: Yes (Hospitalization, Other)
  Sender: FDA-Public Use
  Company Number: US-BAYER-201038939NA

PATIENT
  Age: 13 Year
  Sex: Female
  Weight: 68.027 kg

DRUGS (6)
  1. YAZ [Suspect]
     Indication: PRODUCT USED FOR UNKNOWN INDICATION
     Dosage: UNK UNK, QD
     Route: 048
     Dates: start: 20070101, end: 20080101
  2. GLUCOPHAGE XR [Concomitant]
     Indication: POLYCYSTIC OVARIES
     Dosage: TAKEN FOR 6 YEARS
  3. YAZ [Suspect]
     Indication: PREMENSTRUAL SYNDROME
  4. ELAVIL [Concomitant]
     Indication: MIGRAINE
     Dosage: UNK
     Dates: start: 20060101
  5. MOTRIN [Concomitant]
     Indication: MIGRAINE
     Dosage: 600 MG, TAKEN FOR 6 YEARS
  6. DIAMOX SRC [Concomitant]
     Indication: BENIGN INTRACRANIAL HYPERTENSION
     Dosage: UNK
     Dates: start: 20090101

REACTIONS (3)
  - CHOLELITHIASIS [None]
  - CHOLECYSTITIS CHRONIC [None]
  - BILE DUCT STONE [None]
